FAERS Safety Report 4613213-0 (Version None)
Quarter: 2005Q1

REPORT INFORMATION
  Report Type: 
  Country: None (occurrence: None)
  Receive Date: 20050315
  Receipt Date: 20050303
  Transmission Date: 20050727
  Serious: Yes (Hospitalization)
  Sender: FDA-Public Use
  Company Number: 2005040668

PATIENT
  Age: 82 Year
  Sex: Male

DRUGS (5)
  1. NEURONTIN [Suspect]
     Indication: ARTHRALGIA
     Dosage: 900 MG (300 MG, 3 IN 1 D), UNKNOWN
     Dates: start: 20050228
  2. AMITRIPTYLINE HYDROCHLORIDE [Suspect]
     Indication: ILL-DEFINED DISORDER
     Dates: start: 20050228
  3. FLUINDIONE (FLUINDIONE) [Concomitant]
  4. CIPRALAN [Concomitant]
  5. SIMVASTATIN [Concomitant]

REACTIONS (5)
  - AGITATION [None]
  - CONFUSIONAL STATE [None]
  - DRUG INTERACTION [None]
  - HALLUCINATION [None]
  - NIGHTMARE [None]
